FAERS Safety Report 18565664 (Version 1)
Quarter: 2020Q4

REPORT INFORMATION
  Report Type: Spontaneous
  Country: US (occurrence: US)
  Receive Date: 20201201
  Receipt Date: 20201201
  Transmission Date: 20210114
  Serious: Yes (Hospitalization)
  Sender: FDA-Public Use
  Company Number: None

PATIENT
  Sex: Female

DRUGS (3)
  1. KISQALI [Suspect]
     Active Substance: RIBOCICLIB
     Indication: PRODUCT USED FOR UNKNOWN INDICATION
     Route: 048
     Dates: start: 20201009
  2. METOPROL SUC TAB 25MG ER [Concomitant]
     Dates: start: 20200915
  3. LETROZOLE TAB 2.5MG [Concomitant]
     Active Substance: LETROZOLE
     Dates: start: 20200915

REACTIONS (1)
  - Therapy interrupted [None]
